FAERS Safety Report 23881551 (Version 1)
Quarter: 2024Q2

REPORT INFORMATION
  Report Type: Spontaneous
  Country: US (occurrence: US)
  Receive Date: 20240521
  Receipt Date: 20240521
  Transmission Date: 20240716
  Serious: No
  Sender: FDA-Public Use
  Company Number: US-SA-SAC20240510001111

PATIENT
  Age: 78 Year
  Sex: Female
  Weight: 86.1 kg

DRUGS (2)
  1. DUPIXENT [Suspect]
     Active Substance: DUPILUMAB
     Indication: Dermatitis atopic
     Dosage: 300 MG, QOW
     Route: 058
     Dates: start: 20240216
  2. PROLIA [Concomitant]
     Active Substance: DENOSUMAB

REACTIONS (7)
  - Mobility decreased [Not Recovered/Not Resolved]
  - Arthritis [Unknown]
  - Arthralgia [Not Recovered/Not Resolved]
  - Eczema [Unknown]
  - Pruritus [Unknown]
  - Dry skin [Unknown]
  - Therapeutic response shortened [Unknown]

NARRATIVE: CASE EVENT DATE: 20240101
